FAERS Safety Report 5718781-3 (Version None)
Quarter: 2008Q2

REPORT INFORMATION
  Report Type: 
  Country: None (occurrence: None)
  Receive Date: 20080423
  Receipt Date: 20080409
  Transmission Date: 20081010
  Serious: Yes (Death, Hospitalization)
  Sender: FDA-Public Use
  Company Number: A-CH2008-20191

PATIENT
  Age: 62 Year
  Sex: Female

DRUGS (6)
  1. TRACLEER [Suspect]
     Indication: PULMONARY HYPERTENSION
     Dosage: 125 MG, BID, ORAL
     Route: 048
     Dates: start: 20060301, end: 20071006
  2. SPIRIVA [Concomitant]
  3. OXIS (FORMOTEROL) [Concomitant]
  4. DIGIMERCK (DIGITOXIN) [Concomitant]
  5. DILTIAZEM [Concomitant]
  6. LASIX [Concomitant]

REACTIONS (1)
  - NEOPLASM MALIGNANT [None]
